FAERS Safety Report 7360418-4 (Version None)
Quarter: 2011Q1

REPORT INFORMATION
  Report Type: 
  Country: None (occurrence: None)
  Receive Date: 20110318
  Receipt Date: 20100817
  Transmission Date: 20110831
  Serious: Yes (Hospitalization)
  Sender: FDA-Public Use
  Company Number: US-BAYER-201016037NA

PATIENT
  Sex: Female
  Weight: 68.027 kg

DRUGS (10)
  1. ACIPHEX [Concomitant]
     Dosage: 20 MG, QD
     Route: 048
  2. IBUPROFEN [Concomitant]
  3. YAZ [Suspect]
     Indication: ACNE
     Dosage: AS USED DOSE: UNK
     Route: 048
     Dates: start: 20060101, end: 20070101
  4. NEXIUM [Concomitant]
     Indication: GASTROOESOPHAGEAL REFLUX DISEASE
     Dosage: UNK
     Dates: start: 20070101
  5. YAZ [Suspect]
     Indication: PREMENSTRUAL SYNDROME
  6. CELEXA [Concomitant]
     Dosage: 20 MG, QD
     Route: 048
  7. PAXIL [Concomitant]
     Indication: DEPRESSION
  8. PROZAC [Concomitant]
     Indication: DEPRESSION
  9. YASMIN [Suspect]
     Indication: PRODUCT USED FOR UNKNOWN INDICATION
     Route: 048
  10. WELLBUTRIN SR [Concomitant]
     Indication: DEPRESSION
     Dosage: 150 MG, QD
     Route: 048

REACTIONS (1)
  - PULMONARY EMBOLISM [None]
